FAERS Safety Report 20643798 (Version 1)
Quarter: 2022Q1

REPORT INFORMATION
  Report Type: Spontaneous
  Country: US (occurrence: US)
  Receive Date: 20220328
  Receipt Date: 20220328
  Transmission Date: 20220423
  Serious: Yes (Other)
  Sender: FDA-Public Use
  Company Number: US-JNJFOC-20220339846

PATIENT
  Age: 67 Year
  Sex: Female

DRUGS (3)
  1. SPRAVATO [Suspect]
     Active Substance: ESKETAMINE
     Indication: Depression
     Dosage: 56 MG, 1 DOSE
     Dates: start: 20211214, end: 20211214
  2. SPRAVATO [Suspect]
     Active Substance: ESKETAMINE
     Dosage: 84 MG, 18 DOSES
     Dates: start: 20211216, end: 20220310
  3. SPRAVATO [Suspect]
     Active Substance: ESKETAMINE
     Dates: start: 20220317, end: 20220317

REACTIONS (1)
  - Hand fracture [Unknown]
